FAERS Safety Report 13417589 (Version 1)
Quarter: 2017Q2

REPORT INFORMATION
  Report Type: Report from Study
  Country: US (occurrence: US)
  Receive Date: 20170407
  Receipt Date: 20170407
  Transmission Date: 20170830
  Serious: Yes (Hospitalization)
  Sender: FDA-Public Use
  Company Number: US-ACTELION-A-NJ2017-152005

PATIENT
  Age: 75 Year
  Sex: Female

DRUGS (18)
  1. ALPHAGAN P [Concomitant]
     Active Substance: BRIMONIDINE TARTRATE
  2. PULMICORT TURBUHALER [Concomitant]
     Active Substance: BUDESONIDE
  3. LIPITOR [Concomitant]
     Active Substance: ATORVASTATIN CALCIUM
  4. ALBUTEROL. [Concomitant]
     Active Substance: ALBUTEROL
  5. OPSUMIT [Suspect]
     Active Substance: MACITENTAN
     Indication: PULMONARY ARTERIAL HYPERTENSION
     Dosage: 10 MG, QD
     Route: 048
     Dates: start: 20161028, end: 201703
  6. RANEXA [Concomitant]
     Active Substance: RANOLAZINE
  7. BUMETANIDE. [Concomitant]
     Active Substance: BUMETANIDE
  8. SYSTANE (HYPROMELLOSE 2910 (4000 MPA.S)) [Concomitant]
     Active Substance: HYPROMELLOSE 2910 (4000 MPA.S)
  9. ANORO ELLIPTA [Concomitant]
     Active Substance: UMECLIDINIUM BROMIDE\VILANTEROL TRIFENATATE
  10. VOLTAREN [Concomitant]
     Active Substance: DICLOFENAC SODIUM
  11. ADEMPAS [Concomitant]
     Active Substance: RIOCIGUAT
     Dosage: UNK
     Dates: end: 201703
  12. POTASSIUM CHLORIDE. [Concomitant]
     Active Substance: POTASSIUM CHLORIDE
  13. NORVASC [Concomitant]
     Active Substance: AMLODIPINE BESYLATE
  14. HYDROCODONE [Concomitant]
     Active Substance: HYDROCODONE
  15. MACROBID [Concomitant]
     Active Substance: NITROFURANTOIN\NITROFURANTOIN MONOHYDRATE
  16. LASIX [Concomitant]
     Active Substance: FUROSEMIDE
  17. ELIQUIS [Concomitant]
     Active Substance: APIXABAN
  18. UPTRAVI [Suspect]
     Active Substance: SELEXIPAG
     Indication: PULMONARY ARTERIAL HYPERTENSION
     Dosage: 800 MCG, BID
     Route: 048
     Dates: start: 20170307, end: 201703

REACTIONS (4)
  - Blood pressure abnormal [Unknown]
  - Heart rate abnormal [Unknown]
  - Dyspnoea [Unknown]
  - Pneumonia [Unknown]

NARRATIVE: CASE EVENT DATE: 20170312
